FAERS Safety Report 6998868-8 (Version None)
Quarter: 2010Q3

REPORT INFORMATION
  Report Type: 
  Country: None (occurrence: None)
  Receive Date: 20100920
  Receipt Date: 20091023
  Transmission Date: 20110219
  Serious: No
  Sender: FDA-Public Use
  Company Number: GB-ASTRAZENECA-2009SE22348

PATIENT
  Age: 43 Year
  Sex: Female
  Weight: 89.4 kg

DRUGS (4)
  1. SEROQUEL [Suspect]
     Indication: ANXIETY
     Route: 048
     Dates: start: 20080101
  2. SEROQUEL [Suspect]
     Route: 048
     Dates: start: 20080101
  3. LAMICTAL [Concomitant]
     Indication: BIPOLAR DISORDER
     Dosage: DAILY
     Route: 048
  4. PROZAC [Concomitant]
     Indication: DEPRESSION
     Dosage: DAILY
     Route: 048

REACTIONS (3)
  - HYPOMETABOLISM [None]
  - SOMNOLENCE [None]
  - WEIGHT INCREASED [None]
